FAERS Safety Report 21598713 (Version 1)
Quarter: 2022Q4

REPORT INFORMATION
  Report Type: Spontaneous
  Country: US (occurrence: US)
  Receive Date: 20221115
  Receipt Date: 20221115
  Transmission Date: 20230113
  Serious: No
  Sender: FDA-Public Use
  Company Number: US-SA-SAC20221110001897

PATIENT
  Sex: Female

DRUGS (1)
  1. DUPIXENT [Suspect]
     Active Substance: DUPILUMAB
     Indication: Dermatitis atopic
     Dosage: 300 DF, QOW
     Route: 058
     Dates: start: 20180601

REACTIONS (3)
  - Migraine [Not Recovered/Not Resolved]
  - Impaired quality of life [Not Recovered/Not Resolved]
  - Dermatitis atopic [Not Recovered/Not Resolved]
